FAERS Safety Report 7178123-6 (Version None)
Quarter: 2010Q4

REPORT INFORMATION
  Report Type: 
  Country: None (occurrence: None)
  Receive Date: 20101220
  Receipt Date: 20101215
  Transmission Date: 20110411
  Serious: Yes (Other)
  Sender: FDA-Public Use
  Company Number: A0900411A

PATIENT
  Sex: Female

DRUGS (1)
  1. VENTOLIN [Suspect]
     Indication: ASTHMA
     Route: 065

REACTIONS (3)
  - DRUG INEFFECTIVE [None]
  - HEADACHE [None]
  - LOSS OF CONSCIOUSNESS [None]
